FAERS Safety Report 18926746 (Version 1)
Quarter: 2021Q1

REPORT INFORMATION
  Report Type: Spontaneous
  Country: US (occurrence: US)
  Receive Date: 20210223
  Receipt Date: 20210223
  Transmission Date: 20210420
  Serious: No
  Sender: FDA-Public Use
  Company Number: US-SA-2021SA060143

PATIENT
  Sex: Male

DRUGS (14)
  1. PREDNISONE. [Suspect]
     Active Substance: PREDNISONE
  2. CLOBETASOL [Concomitant]
     Active Substance: CLOBETASOL
  3. TACROLIMUS. [Concomitant]
     Active Substance: TACROLIMUS
  4. DUPIXENT [Suspect]
     Active Substance: DUPILUMAB
     Indication: DERMATITIS ATOPIC
     Dosage: 300MG, QOW
     Route: 058
  5. VENTOLIN HFA [Concomitant]
     Active Substance: ALBUTEROL SULFATE
  6. AMITIZA [Concomitant]
     Active Substance: LUBIPROSTONE
  7. SINGULAIR [Concomitant]
     Active Substance: MONTELUKAST SODIUM
  8. ONFI [Concomitant]
     Active Substance: CLOBAZAM
  9. METOPROLOL SUCCINATE. [Concomitant]
     Active Substance: METOPROLOL SUCCINATE
  10. GABITRIL [Concomitant]
     Active Substance: TIAGABINE HYDROCHLORIDE
  11. DOXYCYCLINE HYCLATE. [Concomitant]
     Active Substance: DOXYCYCLINE HYCLATE
  12. PIMECROLIMUS. [Concomitant]
     Active Substance: PIMECROLIMUS
  13. PLAQUENIL [Concomitant]
     Active Substance: HYDROXYCHLOROQUINE SULFATE
  14. VIMPAT [Concomitant]
     Active Substance: LACOSAMIDE

REACTIONS (10)
  - Scab [Unknown]
  - Fungal infection [Unknown]
  - Vision blurred [Unknown]
  - Chest pain [Unknown]
  - Dry skin [Unknown]
  - Pain [Unknown]
  - Product use in unapproved indication [Unknown]
  - Eye swelling [Unknown]
  - Skin tightness [Unknown]
  - Non-cardiac chest pain [Unknown]
